FAERS Safety Report 15539640 (Version 1)
Quarter: 2018Q4

REPORT INFORMATION
  Report Type: Spontaneous
  Country: US (occurrence: US)
  Receive Date: 20181023
  Receipt Date: 20181023
  Transmission Date: 20190205
  Serious: No
  Sender: FDA-Public Use
  Company Number: US-INSYS THERAPEUTICS, INC-INS201808-000269

PATIENT
  Sex: Male

DRUGS (1)
  1. SYNDROS [Suspect]
     Active Substance: DRONABINOL
     Indication: DECREASED APPETITE

REACTIONS (3)
  - Drug ineffective [Unknown]
  - Product taste abnormal [Unknown]
  - Underdose [Unknown]
